FAERS Safety Report 7363850-8 (Version None)
Quarter: 2011Q1

REPORT INFORMATION
  Report Type: 
  Country: None (occurrence: None)
  Receive Date: 20110321
  Receipt Date: 20110308
  Transmission Date: 20110831
  Serious: Yes (Hospitalization, Other)
  Sender: FDA-Public Use
  Company Number: KR-PAR PHARMACEUTICAL, INC-2011SCPR002756

PATIENT
  Age: 75 Year
  Sex: Male

DRUGS (7)
  1. DOXYCYCLINE [Suspect]
     Indication: SCRUB TYPHUS
     Dosage: 100 MG, BID
     Route: 048
  2. GEL 2 SUSPENSION [Suspect]
     Indication: NAUSEA
  3. ALMAGATE [Suspect]
     Indication: NAUSEA
  4. GEL 2 SUSPENSION [Suspect]
     Indication: ABDOMINAL PAIN UPPER
     Dosage: UNK
     Route: 065
  5. MARNTIN [Suspect]
     Indication: ABDOMINAL PAIN UPPER
     Dosage: 150 MG, BID
     Route: 065
  6. ALMAGATE [Suspect]
     Indication: ABDOMINAL PAIN UPPER
     Dosage: 1.5 G, TID
     Route: 065
  7. MARNTIN [Suspect]
     Indication: NAUSEA

REACTIONS (9)
  - SCRUB TYPHUS [None]
  - PLEURAL EFFUSION [None]
  - CONDITION AGGRAVATED [None]
  - ENCEPHALITIS [None]
  - DRUG INTERACTION [None]
  - GASTRODUODENAL ULCER [None]
  - PULMONARY OEDEMA [None]
  - DRUG LEVEL BELOW THERAPEUTIC [None]
  - TREATMENT FAILURE [None]
